FAERS Safety Report 5243845-0 (Version None)
Quarter: 2007Q1

REPORT INFORMATION
  Report Type: 
  Country: None (occurrence: None)
  Receive Date: 20070222
  Receipt Date: 20070212
  Transmission Date: 20070707
  Serious: Yes (Hospitalization)
  Sender: FDA-Public Use
  Company Number: ES-ELI_LILLY_AND_COMPANY-ES200702002427

PATIENT
  Age: 82 Year
  Sex: Female

DRUGS (4)
  1. FORTEO [Suspect]
     Indication: OSTEOPOROSIS
     Dosage: 20 UG, DAILY (1/D)
     Route: 058
     Dates: start: 20070122
  2. MORPHINE [Concomitant]
     Indication: PAIN
  3. ANTI-DIABETICS [Concomitant]
  4. IRON [Concomitant]
     Indication: ANAEMIA

REACTIONS (4)
  - BACK PAIN [None]
  - DYSPNOEA [None]
  - LUNG INFECTION [None]
  - RESPIRATORY FAILURE [None]
